FAERS Safety Report 9980004 (Version 1)
Quarter: 2014Q1

REPORT INFORMATION
  Report Type: Report from Study
  Country: US (occurrence: US)
  Receive Date: 20140307
  Receipt Date: 20140307
  Transmission Date: 20141002
  Serious: No
  Sender: FDA-Public Use
  Company Number: US-ABBVIE-13P-163-1176026-00

PATIENT
  Age: 67 Year
  Sex: Female
  Weight: 68.1 kg

DRUGS (9)
  1. HUMIRA [Suspect]
     Indication: PSORIATIC ARTHROPATHY
     Dates: start: 2011
  2. OXYCODONE [Concomitant]
     Indication: BACK PAIN
  3. CLONAZEPAM [Concomitant]
     Indication: ANXIETY
  4. CALCIUM CITRATE + D [Concomitant]
     Indication: SUPPLEMENTATION THERAPY
  5. STROVITE [Concomitant]
     Indication: SUPPLEMENTATION THERAPY
  6. ASPIRIN [Concomitant]
     Indication: THROMBOSIS PROPHYLAXIS
  7. OMEPRAZOLE [Concomitant]
     Indication: GASTROOESOPHAGEAL REFLUX DISEASE
  8. REMERON [Concomitant]
     Indication: DEPRESSION
  9. FENTANYL [Concomitant]
     Indication: BACK PAIN

REACTIONS (2)
  - Inappropriate schedule of drug administration [Not Recovered/Not Resolved]
  - Pain in extremity [Recovered/Resolved]
